FAERS Safety Report 16454476 (Version 1)
Quarter: 2019Q2

REPORT INFORMATION
  Report Type: Spontaneous
  Country: US (occurrence: US)
  Receive Date: 20190619
  Receipt Date: 20190619
  Transmission Date: 20190711
  Serious: No
  Sender: FDA-Public Use
  Company Number: US-ROCHE-2232085

PATIENT
  Sex: Female
  Weight: 54.48 kg

DRUGS (5)
  1. LEVOTHYROXINE. [Concomitant]
     Active Substance: LEVOTHYROXINE
     Dosage: ONGOING:UNKNOWN
     Route: 048
     Dates: start: 20170321
  2. HUMALOG MIX [Concomitant]
     Active Substance: INSULIN LISPRO
     Route: 058
     Dates: start: 20170321, end: 20180314
  3. ACTEMRA [Suspect]
     Active Substance: TOCILIZUMAB
     Indication: RHEUMATOID ARTHRITIS
     Dosage: ONGOING:UNKNOWN
     Route: 058
     Dates: start: 20170309
  4. LYSINE [Concomitant]
     Active Substance: LYSINE
     Dosage: ONGOING:UNKNOWN
     Route: 048
     Dates: start: 20170321
  5. FLUZONE [INFLUENZA VACCINE] [Concomitant]
     Route: 023
     Dates: start: 20170330, end: 20180314

REACTIONS (1)
  - Nasopharyngitis [Unknown]
